FAERS Safety Report 17807173 (Version 2)
Quarter: 2020Q2

REPORT INFORMATION
  Report Type: Other
  Country: ES (occurrence: ES)
  Receive Date: 20200520
  Receipt Date: 20200611
  Transmission Date: 20200714
  Serious: Yes (Other)
  Sender: FDA-Public Use
  Company Number: ES-DEXPHARM-20200405

PATIENT
  Age: 71 Year
  Sex: Female

DRUGS (11)
  1. SIMVASTATIN. [Suspect]
     Active Substance: SIMVASTATIN
     Dosage: AT DINNER
  2. QUETIAPINE. [Suspect]
     Active Substance: QUETIAPINE
     Dosage: AT BREAKFAST AND DINNER
  3. QUETIAPINE. [Suspect]
     Active Substance: QUETIAPINE
     Dosage: AT BREAKFAST AND DINNER
  4. OXCARBAZEPINE. [Suspect]
     Active Substance: OXCARBAZEPINE
  5. LOSARTAN. [Suspect]
     Active Substance: LOSARTAN
     Dosage: AT BREAKFAS
  6. PREGABALIN. [Suspect]
     Active Substance: PREGABALIN
  7. BROMAZEPAM [Suspect]
     Active Substance: BROMAZEPAM
     Dosage: AT BREAKFAST AND DINNER
  8. BROMAZEPAM [Suspect]
     Active Substance: BROMAZEPAM
  9. OMEPRAZOLE. [Suspect]
     Active Substance: OMEPRAZOLE
  10. ASPIRIN. [Suspect]
     Active Substance: ASPIRIN
  11. AMLODIPINE [Suspect]
     Active Substance: AMLODIPINE BESYLATE
     Dosage: AT BREAKFAST

REACTIONS (1)
  - Parkinsonism [Recovered/Resolved]
